FAERS Safety Report 5644153-6 (Version None)
Quarter: 2008Q1

REPORT INFORMATION
  Report Type: 
  Country: None (occurrence: None)
  Receive Date: 20080227
  Receipt Date: 20080212
  Transmission Date: 20080703
  Serious: Yes (Death)
  Sender: FDA-Public Use
  Company Number: US022230

PATIENT
  Age: 44 Year
  Sex: Male

DRUGS (1)
  1. FENTORA [Suspect]
     Dosage: 1200 UG ONCE BUCCAL
     Route: 002
     Dates: start: 20080101, end: 20080101

REACTIONS (5)
  - ACUTE MYOCARDIAL INFARCTION [None]
  - DRUG DIVERSION [None]
  - OVERDOSE [None]
  - REFUSAL OF TREATMENT BY PATIENT [None]
  - SELF-MEDICATION [None]
